FAERS Safety Report 9453169 (Version 1)
Quarter: 2013Q3

REPORT INFORMATION
  Report Type: Report from Study
  Country: US (occurrence: US)
  Receive Date: 20130812
  Receipt Date: 20130812
  Transmission Date: 20140515
  Serious: Yes (Other)
  Sender: FDA-Public Use
  Company Number: US-CUBIST PHARMACEUTICAL, INC.-2013CBST000024

PATIENT
  Age: 47 Year
  Sex: Female
  Weight: 117.9 kg

DRUGS (4)
  1. DAPTOMYCIN [Suspect]
     Indication: SKIN INFECTION
     Dosage: 1750 MG, Q12H
     Route: 042
     Dates: start: 20110420, end: 20110421
  2. UNASYN                             /00903601/ [Concomitant]
     Indication: SKIN INFECTION
     Dosage: 3 G, Q6H
     Route: 042
     Dates: start: 20110420, end: 20110422
  3. CLEOCIN                            /00166002/ [Concomitant]
     Indication: SKIN INFECTION
     Dosage: 600 MG, Q6H
     Route: 042
     Dates: start: 20110421, end: 20110426
  4. CLEOCIN                            /00166002/ [Concomitant]
     Dosage: 600 MG, Q6H
     Route: 048
     Dates: start: 20110427, end: 20110504

REACTIONS (1)
  - Renal failure [Recovered/Resolved]
